FAERS Safety Report 9981607 (Version 1)
Quarter: 2014Q1

REPORT INFORMATION
  Report Type: Spontaneous
  Country: US (occurrence: US)
  Receive Date: 20140307
  Receipt Date: 20140307
  Transmission Date: 20141002
  Serious: No
  Sender: FDA-Public Use
  Company Number: US-ABBVIE-13P-163-1179929-00

PATIENT
  Sex: Male

DRUGS (4)
  1. HUMIRA [Suspect]
     Indication: GUTTATE PSORIASIS
     Dates: start: 201212, end: 201312
  2. CLARITIN [Concomitant]
     Indication: PRODUCT USED FOR UNKNOWN INDICATION
  3. NEXIUM [Concomitant]
     Indication: PRODUCT USED FOR UNKNOWN INDICATION
  4. EPIDUO [Concomitant]
     Indication: ACNE
     Route: 061

REACTIONS (2)
  - Latent tuberculosis [Unknown]
  - Injection site reaction [Not Recovered/Not Resolved]
